FAERS Safety Report 6197884-6 (Version None)
Quarter: 2009Q2

REPORT INFORMATION
  Report Type: 
  Country: None (occurrence: None)
  Receive Date: 20090521
  Receipt Date: 20090518
  Transmission Date: 20091009
  Serious: Yes (Life-Threatening, Hospitalization)
  Sender: FDA-Public Use
  Company Number: A0719542A

PATIENT
  Sex: Female
  Weight: 110 kg

DRUGS (4)
  1. RYTHMOL [Suspect]
     Indication: VENTRICULAR EXTRASYSTOLES
     Dosage: 600MG PER DAY
     Route: 048
     Dates: start: 19981020, end: 19990212
  2. XENICAL [Suspect]
     Indication: OBESITY
     Dosage: 360MG PER DAY
     Route: 048
     Dates: start: 19990118, end: 19990212
  3. UNSPECIFIED MEDICATION [Suspect]
  4. AVLOCARDYL [Concomitant]
     Indication: EXTRASYSTOLES
     Dates: start: 19950101, end: 19981019

REACTIONS (16)
  - ATRIOVENTRICULAR BLOCK [None]
  - CIRCULATORY COLLAPSE [None]
  - CONVULSION [None]
  - DRUG INTERACTION [None]
  - DRUG LEVEL INCREASED [None]
  - DRUG SCREEN FALSE POSITIVE [None]
  - HYPERTRIGLYCERIDAEMIA [None]
  - HYPOKALAEMIA [None]
  - HYPOTONIA [None]
  - INTENTIONAL OVERDOSE [None]
  - MALAISE [None]
  - SHOCK [None]
  - SOMNOLENCE [None]
  - SUICIDE ATTEMPT [None]
  - TORSADE DE POINTES [None]
  - URINARY INCONTINENCE [None]
